FAERS Safety Report 21963247 (Version 1)
Quarter: 2023Q1

REPORT INFORMATION
  Report Type: Spontaneous
  Country: US (occurrence: US)
  Receive Date: 20230207
  Receipt Date: 20230207
  Transmission Date: 20230418
  Serious: No
  Sender: FDA-Public Use
  Company Number: US-AMRYT PHARMACEUTICALS DAC-AEGR006000

PATIENT
  Sex: Male
  Weight: 17.234 kg

DRUGS (7)
  1. MYALEPT [Suspect]
     Active Substance: METRELEPTIN
     Indication: Lipodystrophy acquired
     Dosage: 0.8 MILLIGRAM (0.16ML OR 16UNITS), QD
     Route: 058
  2. MYALEPT [Suspect]
     Active Substance: METRELEPTIN
     Dosage: 24 UNITS
     Route: 058
  3. MYALEPT [Suspect]
     Active Substance: METRELEPTIN
     Dosage: 1.2 MILLIGRAM (0.24 ML), QD
     Route: 058
  4. VITAMINS [Concomitant]
     Active Substance: VITAMINS
     Indication: Product used for unknown indication
  5. BACTERIOSTATIC WATER [Concomitant]
     Active Substance: WATER
     Indication: Product used for unknown indication
  6. FENOFIBRATE [Concomitant]
     Active Substance: FENOFIBRATE
     Indication: Product used for unknown indication
  7. METFORMIN HYDROCHLORIDE [Concomitant]
     Active Substance: METFORMIN HYDROCHLORIDE
     Indication: Product used for unknown indication

REACTIONS (2)
  - Abdominal pain [Unknown]
  - Intentional product use issue [Unknown]
